FAERS Safety Report 25337923 (Version 1)
Quarter: 2025Q2

REPORT INFORMATION
  Report Type: Report from Study
  Country: IR (occurrence: IR)
  Receive Date: 20250520
  Receipt Date: 20250520
  Transmission Date: 20250717
  Serious: Yes (Other)
  Sender: MYLAN
  Company Number: IR-MYLANLABS-2025M1043028

PATIENT
  Age: 9 Year
  Sex: Male

DRUGS (4)
  1. METHOTREXATE [Suspect]
     Active Substance: METHOTREXATE
     Indication: Chronic graft versus host disease in skin
  2. CYCLOSPORINE [Suspect]
     Active Substance: CYCLOSPORINE
     Indication: Prophylaxis against graft versus host disease
  3. PREDNISOLONE [Suspect]
     Active Substance: PREDNISOLONE
     Indication: Chronic graft versus host disease in skin
  4. MYCOPHENOLATE MOFETIL [Suspect]
     Active Substance: MYCOPHENOLATE MOFETIL
     Indication: Chronic graft versus host disease in skin

REACTIONS (1)
  - Drug ineffective [Unknown]
